FAERS Safety Report 5851895-6 (Version None)
Quarter: 2008Q3

REPORT INFORMATION
  Report Type: 
  Country: None (occurrence: None)
  Receive Date: 20080820
  Receipt Date: 20080812
  Transmission Date: 20090109
  Serious: Yes (Hospitalization)
  Sender: FDA-Public Use
  Company Number: IE-PFIZER INC-2008067851

PATIENT
  Age: 60 Year
  Sex: Male

DRUGS (1)
  1. LIPITOR [Suspect]
     Indication: ILL-DEFINED DISORDER
     Route: 048

REACTIONS (10)
  - ABASIA [None]
  - ACTIVITIES OF DAILY LIVING IMPAIRED [None]
  - ANOREXIA [None]
  - CHOKING [None]
  - DYSPHAGIA [None]
  - DYSPNOEA [None]
  - FALL [None]
  - MOBILITY DECREASED [None]
  - MYOPATHY [None]
  - WEIGHT DECREASED [None]
